FAERS Safety Report 4346034-7 (Version None)
Quarter: 2004Q1

REPORT INFORMATION
  Report Type: 
  Country: None (occurrence: None)
  Receive Date: 20040325
  Receipt Date: 20031224
  Transmission Date: 20041129
  Serious: No
  Sender: FDA-Public Use
  Company Number: USA030845783

PATIENT
  Age: 56 Year
  Sex: Female

DRUGS (8)
  1. FORTEO [Suspect]
     Indication: OSTEOPOROSIS
     Dosage: 20 UG/DAY
     Dates: start: 20030719, end: 20030801
  2. LODINE [Concomitant]
  3. TRICAR [Concomitant]
  4. PREVACID [Concomitant]
  5. NORFLEX [Concomitant]
  6. DIAZEPAM [Concomitant]
  7. PREMARIN [Concomitant]
  8. FOLGARD [Concomitant]

REACTIONS (22)
  - BLOOD URINE [None]
  - CYSTITIS [None]
  - CYSTITIS ESCHERICHIA [None]
  - DIZZINESS [None]
  - ESCHERICHIA INFECTION [None]
  - GINGIVAL SWELLING [None]
  - HEADACHE [None]
  - INJECTION SITE ERYTHEMA [None]
  - INJECTION SITE HAEMORRHAGE [None]
  - INJECTION SITE REACTION [None]
  - INJECTION SITE SWELLING [None]
  - INJECTION SITE URTICARIA [None]
  - NAUSEA [None]
  - NIGHT SWEATS [None]
  - PHARYNGOLARYNGEAL PAIN [None]
  - PYREXIA [None]
  - SKIN IRRITATION [None]
  - STOMATITIS [None]
  - TREMOR [None]
  - URINARY TRACT INFECTION [None]
  - URTICARIA PAPULAR [None]
  - WHITE BLOOD CELL COUNT DECREASED [None]
